FAERS Safety Report 9742755 (Version 2)
Quarter: 2013Q4

REPORT INFORMATION
  Report Type: Spontaneous
  Country: US (occurrence: US)
  Receive Date: 20131210
  Receipt Date: 20131210
  Transmission Date: 20140711
  Serious: No
  Sender: FDA-Public Use
  Company Number: US-GILEAD-2009-0025350

PATIENT
  Age: 44 Year
  Sex: Female
  Weight: 68.2 kg

DRUGS (11)
  1. LETAIRIS [Suspect]
     Indication: PULMONARY ARTERIAL HYPERTENSION
     Route: 048
  2. LETAIRIS [Suspect]
     Route: 048
     Dates: start: 20090918, end: 20091022
  3. ADCIRCA [Concomitant]
  4. CELLCEPT [Concomitant]
  5. XANAX [Concomitant]
  6. PLAQUENIL [Concomitant]
  7. SOMA [Concomitant]
  8. PREDNISONE [Concomitant]
  9. LYRICA [Concomitant]
  10. RECLAST [Concomitant]
  11. FOLIC ACID [Concomitant]

REACTIONS (1)
  - Liver function test abnormal [Recovered/Resolved]
